FAERS Safety Report 21709021 (Version 1)
Quarter: 2022Q4

REPORT INFORMATION
  Report Type: Report from Study
  Country: US (occurrence: US)
  Receive Date: 20221210
  Receipt Date: 20221210
  Transmission Date: 20230112
  Serious: Yes (Hospitalization)
  Sender: FDA-Public Use
  Company Number: US-ABBVIE-4230296

PATIENT
  Sex: Female

DRUGS (1)
  1. VENCLEXTA [Suspect]
     Active Substance: VENETOCLAX
     Indication: Myelodysplastic syndrome
     Route: 048
     Dates: start: 202211

REACTIONS (6)
  - Haemoglobin abnormal [Unknown]
  - Pyrexia [Unknown]
  - Blood disorder [Unknown]
  - Platelet disorder [Unknown]
  - Bone marrow disorder [Unknown]
  - Off label use [Unknown]
